FAERS Safety Report 5655466-6 (Version None)
Quarter: 2008Q1

REPORT INFORMATION
  Report Type: 
  Country: None (occurrence: None)
  Receive Date: 20080307
  Receipt Date: 20080228
  Transmission Date: 20080703
  Serious: Yes (Hospitalization, Other)
  Sender: FDA-Public Use
  Company Number: HQWYE090926OCT04

PATIENT
  Sex: Female

DRUGS (2)
  1. PREMPHASE 14/14 [Suspect]
  2. MEDROXYPROGESTERONE ACETATE [Suspect]

REACTIONS (2)
  - CEREBROVASCULAR ACCIDENT [None]
  - GRAND MAL CONVULSION [None]
